FAERS Safety Report 9228598 (Version 2)
Quarter: 2013Q2

REPORT INFORMATION
  Report Type: Spontaneous
  Country: DE (occurrence: DE)
  Receive Date: 20130412
  Receipt Date: 20130611
  Transmission Date: 20140414
  Serious: Yes (Life-Threatening, Other)
  Sender: FDA-Public Use
  Company Number: DE-ROCHE-1212878

PATIENT
  Age: 46 Year
  Sex: Female

DRUGS (4)
  1. ACTILYSE [Suspect]
     Indication: CEREBRAL VENOUS THROMBOSIS
     Route: 065
  2. ACTILYSE [Suspect]
     Indication: CEREBRAL VENOUS THROMBOSIS
  3. HEPARIN [Suspect]
     Indication: CEREBRAL VENOUS THROMBOSIS
     Route: 065
  4. HEPARIN [Suspect]
     Indication: CEREBRAL VENOUS THROMBOSIS

REACTIONS (7)
  - Brain midline shift [Unknown]
  - Brain oedema [Unknown]
  - Cerebral infarction [Unknown]
  - Pneumonia staphylococcal [Unknown]
  - Uterine haemorrhage [Unknown]
  - Hemiparesis [Unknown]
  - Neurologic neglect syndrome [Unknown]
